FAERS Safety Report 11652177 (Version 4)
Quarter: 2016Q1

REPORT INFORMATION
  Report Type: Spontaneous
  Country: US (occurrence: US)
  Receive Date: 20151022
  Receipt Date: 20160104
  Transmission Date: 20160525
  Serious: No
  Sender: FDA-Public Use
  Company Number: US-PFIZER INC-2015338054

PATIENT

DRUGS (1)
  1. TRIAZOLAM. [Suspect]
     Active Substance: TRIAZOLAM
     Indication: SEDATION
     Dosage: 0.25 MG, UNK (GOT FOUR TABLETS)

REACTIONS (2)
  - Extra dose administered [Unknown]
  - Drug ineffective [Unknown]
